FAERS Safety Report 12853120 (Version 1)
Quarter: 2016Q4

REPORT INFORMATION
  Report Type: Spontaneous
  Country: GB (occurrence: GB)
  Receive Date: 20161017
  Receipt Date: 20161017
  Transmission Date: 20170207
  Serious: Yes (Hospitalization, Other)
  Sender: FDA-Public Use
  Company Number: PHHY2016GB138273

PATIENT
  Age: 72 Year
  Sex: Female

DRUGS (6)
  1. BENDROFLUMETHIAZIDE [Concomitant]
     Active Substance: BENDROFLUMETHIAZIDE
     Indication: HYPERTENSION
     Dosage: 2.5 MG QD EVERY MORNING - LONG TERM
     Route: 048
     Dates: start: 19910101, end: 20160927
  2. CITALOPRAM [Suspect]
     Active Substance: CITALOPRAM HYDROBROMIDE
     Indication: ANXIETY
     Dosage: 10 MG, QD
     Route: 048
     Dates: start: 20160915, end: 20160923
  3. ATENOLOL. [Concomitant]
     Active Substance: ATENOLOL
     Indication: HYPERTENSION
     Dosage: 50 MG QD EVERY MORNING
     Route: 048
  4. DESLORATADINE. [Concomitant]
     Active Substance: DESLORATADINE
     Indication: HYPERSENSITIVITY
     Dosage: 5 MG, QD
     Route: 048
  5. PIVMECILLINAM [Concomitant]
     Active Substance: PENICILLIN
     Indication: URINARY TRACT INFECTION
     Dosage: 200 MG, TID
     Route: 048
     Dates: start: 20160922, end: 20160923
  6. NITROFURANTOIN. [Concomitant]
     Active Substance: NITROFURANTOIN
     Indication: URINARY TRACT INFECTION
     Dosage: 100 MG, QID
     Route: 048
     Dates: start: 20160920, end: 20160922

REACTIONS (4)
  - Muscular weakness [Unknown]
  - Malaise [Unknown]
  - Hyponatraemia [Recovering/Resolving]
  - Lethargy [Unknown]

NARRATIVE: CASE EVENT DATE: 201609
